FAERS Safety Report 21671838 (Version 1)
Quarter: 2022Q4

REPORT INFORMATION
  Report Type: Report from Study
  Country: BR (occurrence: BR)
  Receive Date: 20221202
  Receipt Date: 20221202
  Transmission Date: 20230113
  Serious: Yes (Other)
  Sender: FDA-Public Use
  Company Number: BR-TAKEDA-2022TUS033184

PATIENT
  Age: 37 Year
  Sex: Female

DRUGS (1)
  1. VEDOLIZUMAB [Suspect]
     Active Substance: VEDOLIZUMAB
     Indication: Colitis ulcerative
     Dosage: UNK
     Route: 065
     Dates: start: 20220502, end: 20220606

REACTIONS (14)
  - Groin abscess [Not Recovered/Not Resolved]
  - Eye pain [Unknown]
  - Gingival swelling [Unknown]
  - Gingival erythema [Unknown]
  - Aphthous ulcer [Unknown]
  - Oral discomfort [Unknown]
  - Pharyngeal erythema [Not Recovered/Not Resolved]
  - Rhinitis [Not Recovered/Not Resolved]
  - Skin burning sensation [Unknown]
  - Subcutaneous abscess [Not Recovered/Not Resolved]
  - Alopecia [Unknown]
  - Pain [Recovering/Resolving]
  - Headache [Recovered/Resolved]
  - Pruritus [Unknown]

NARRATIVE: CASE EVENT DATE: 20220502
